FAERS Safety Report 7917316-4 (Version None)
Quarter: 2011Q4

REPORT INFORMATION
  Report Type: 
  Country: None (occurrence: None)
  Receive Date: 20111116
  Receipt Date: 20111108
  Transmission Date: 20120403
  Serious: Yes (Hospitalization)
  Sender: FDA-Public Use
  Company Number: PHHO2010TH18397

PATIENT
  Sex: Male

DRUGS (5)
  1. FOLIC ACID [Concomitant]
     Indication: VITAMIN SUPPLEMENTATION
  2. EVEROLIMUS [Suspect]
     Indication: HEPATIC NEOPLASM MALIGNANT
     Dosage: CODE NOT BROKEN
     Dates: start: 20100729, end: 20101117
  3. CENTRUM [Concomitant]
     Indication: VITAMIN SUPPLEMENTATION
  4. LAMIVUDINE (EPIVIR HBV) [Concomitant]
     Indication: HEPATITIS
  5. EVEROLIMUS [Suspect]
     Dosage: CODE NOT BROKEN
     Dates: start: 20101125, end: 20110508

REACTIONS (5)
  - CONCOMITANT DISEASE PROGRESSION [None]
  - THROMBOCYTOPENIA [None]
  - ABDOMINAL PAIN [None]
  - HEPATIC CIRRHOSIS [None]
  - ENTERITIS NECROTICANS [None]
